FAERS Safety Report 5013773-4 (Version None)
Quarter: 2006Q2

REPORT INFORMATION
  Report Type: 
  Country: None (occurrence: None)
  Receive Date: 20060525
  Receipt Date: 20060516
  Transmission Date: 20061013
  Serious: Yes (Other)
  Sender: FDA-Public Use
  Company Number: 2006-DE-02528GD

PATIENT
  Age: 58 Year
  Sex: Male
  Weight: 100.2 kg

DRUGS (5)
  1. MORPHINE SULFATE [Suspect]
     Indication: BACK PAIN
     Dosage: 14 MG (TWO DOSES), SC
     Route: 058
  2. CARBOPLATIN [Concomitant]
  3. AMIFOSTINE (AMIFOSTINE) [Concomitant]
  4. FENTANYL [Concomitant]
  5. FLUCONAZOLE [Concomitant]

REACTIONS (1)
  - INADEQUATE ANALGESIA [None]
